FAERS Safety Report 4872102-7 (Version None)
Quarter: 2005Q4

REPORT INFORMATION
  Report Type: 
  Country: None (occurrence: None)
  Receive Date: 20051230
  Receipt Date: 20051214
  Transmission Date: 20060501
  Serious: Yes (Other)
  Sender: FDA-Public Use
  Company Number: US200512002553

PATIENT
  Age: 82 Year
  Sex: Female

DRUGS (3)
  1. FORTEO [Suspect]
     Indication: OSTEOPOROSIS
     Dates: start: 20051201
  2. FORTEO PEN (FORTEO PEN) PEN, DISPOSABLE [Concomitant]
  3. SINEMET [Concomitant]

REACTIONS (10)
  - ASTHENIA [None]
  - BRONCHITIS [None]
  - CONDITION AGGRAVATED [None]
  - MOBILITY DECREASED [None]
  - ORAL INTAKE REDUCED [None]
  - PARKINSON'S DISEASE [None]
  - RHINORRHOEA [None]
  - SINUSITIS [None]
  - TREMOR [None]
  - WHEELCHAIR USER [None]
